FAERS Safety Report 5243185-X (Version None)
Quarter: 2007Q1

REPORT INFORMATION
  Report Type: 
  Country: None (occurrence: None)
  Receive Date: 20070221
  Receipt Date: 20070213
  Transmission Date: 20070707
  Serious: Yes (Other)
  Sender: FDA-Public Use
  Company Number: US-PFIZER INC-2007012509

PATIENT
  Age: 43 Year
  Sex: Male
  Weight: 117.9 kg

DRUGS (2)
  1. VIAGRA [Suspect]
  2. ALCOHOL [Concomitant]

REACTIONS (2)
  - ERECTION INCREASED [None]
  - PAINFUL ERECTION [None]
